FAERS Safety Report 15476843 (Version 1)
Quarter: 2018Q4

REPORT INFORMATION
  Report Type: Spontaneous
  Country: IT (occurrence: IT)
  Receive Date: 20181009
  Receipt Date: 20181009
  Transmission Date: 20190205
  Serious: Yes (Hospitalization, Other)
  Sender: FDA-Public Use
  Company Number: IT-HORIZON-ACT-0313-2018

PATIENT
  Age: 35 Year
  Sex: Male

DRUGS (3)
  1. CO-TRIMAXAZOLE [Concomitant]
  2. ITRACONAZOLE. [Concomitant]
     Active Substance: ITRACONAZOLE
  3. IMUKIN [Suspect]
     Active Substance: INTERFERON GAMMA
     Indication: CHRONIC GRANULOMATOUS DISEASE

REACTIONS (3)
  - Septic shock [Unknown]
  - Multiple-drug resistance [Unknown]
  - Prostatic abscess [Recovered/Resolved]
